FAERS Safety Report 18742407 (Version 2)
Quarter: 2021Q1

REPORT INFORMATION
  Report Type: Spontaneous
  Country: US (occurrence: US)
  Receive Date: 20210114
  Receipt Date: 20210126
  Transmission Date: 20210419
  Serious: No
  Sender: FDA-Public Use
  Company Number: US-ALLERGAN-2101856US

PATIENT
  Sex: Male

DRUGS (7)
  1. VIIBRYD [Suspect]
     Active Substance: VILAZODONE HYDROCHLORIDE
     Indication: DEPRESSION
     Dosage: 40 MG, QD
     Route: 048
     Dates: start: 202001
  2. SUBOXIN [Concomitant]
  3. LEXAPRO [Concomitant]
     Active Substance: ESCITALOPRAM OXALATE
     Indication: DEPRESSION
  4. KRATOM [Concomitant]
     Active Substance: HERBALS\MITRAGYNINE
     Indication: DRUG WITHDRAWAL MAINTENANCE THERAPY
  5. KLONOPIN [Concomitant]
     Active Substance: CLONAZEPAM
  6. ATIVAN [Concomitant]
     Active Substance: LORAZEPAM
  7. TRAZODONE [Concomitant]
     Active Substance: TRAZODONE HYDROCHLORIDE

REACTIONS (8)
  - Panic attack [Recovered/Resolved]
  - Inability to afford medication [Unknown]
  - Depression [Recovered/Resolved]
  - Therapy interrupted [Unknown]
  - Hypertension [Recovered/Resolved]
  - Mental disorder [Recovered/Resolved]
  - Heart rate increased [Recovered/Resolved]
  - Anxiety [Recovered/Resolved]

NARRATIVE: CASE EVENT DATE: 202101
